FAERS Safety Report 6492516-1 (Version None)
Quarter: 2009Q4

REPORT INFORMATION
  Report Type: 
  Country: None (occurrence: None)
  Receive Date: 20091214
  Receipt Date: 20091207
  Transmission Date: 20100525
  Serious: Yes (Other)
  Sender: FDA-Public Use
  Company Number: US-ROCHE-673017

PATIENT
  Age: 62 Year
  Sex: Male
  Weight: 85 kg

DRUGS (5)
  1. GANCICLOVIR [Suspect]
     Indication: DRUG USE FOR UNKNOWN INDICATION
     Route: 065
     Dates: start: 20091122, end: 20091123
  2. SOLU-MEDROL [Suspect]
     Indication: TRANSPLANT REJECTION
     Dosage: OTH INDICATION: IMMUNOSUPPRESSION, FORM: POWDER FOR SOLUTION FOR INFUSION
     Route: 065
     Dates: start: 20091122
  3. CYTOGAM [Suspect]
     Route: 042
     Dates: start: 20091122, end: 20091122
  4. INSULIN [Concomitant]
  5. PROTONIX [Concomitant]

REACTIONS (3)
  - ANAPHYLACTIC REACTION [None]
  - HAEMORRHAGIC STROKE [None]
  - PULMONARY EMBOLISM [None]
